FAERS Safety Report 8006526 (Version 2)
Quarter: 2013Q4

REPORT INFORMATION
  Report Type: Spontaneous
  Country: US (occurrence: US)
  Receive Date: 20110623
  Receipt Date: 20131106
  Transmission Date: 20140711
  Serious: Yes (Hospitalization, Other)
  Sender: FDA-Public Use
  Company Number: US-ROCHE-785013

PATIENT
  Age: 18 Year
  Sex: Male
  Weight: 63.56 kg

DRUGS (3)
  1. ACCUTANE [Suspect]
     Indication: ACNE
     Route: 065
     Dates: start: 19920329, end: 199208
  2. ACCUTANE [Suspect]
     Route: 065
     Dates: start: 199801, end: 199806
  3. ACCUTANE [Suspect]
     Route: 065
     Dates: start: 19990713, end: 20001001

REACTIONS (11)
  - Colon cancer [Unknown]
  - Irritable bowel syndrome [Unknown]
  - Colitis ulcerative [Unknown]
  - Depression [Unknown]
  - Inflammatory bowel disease [Unknown]
  - Intestinal obstruction [Unknown]
  - Rectal polyp [Unknown]
  - Headache [Unknown]
  - Cheilitis [Unknown]
  - Pain in extremity [Unknown]
  - Folliculitis [Unknown]
